FAERS Safety Report 17602779 (Version 3)
Quarter: 2025Q1

REPORT INFORMATION
  Report Type: Report from Study
  Country: CA (occurrence: None)
  Receive Date: 20200331
  Receipt Date: 20250304
  Transmission Date: 20250409
  Serious: Yes (Hospitalization)
  Sender: ORION
  Company Number: CA-ORION CORPORATION ORION PHARMA-TREX2020-1513

PATIENT
  Age: 10 Year
  Sex: Female
  Weight: 23 kg

DRUGS (32)
  1. METHOTREXATE [Suspect]
     Active Substance: METHOTREXATE
     Indication: Crohn^s disease
  2. METHOTREXATE [Suspect]
     Active Substance: METHOTREXATE
  3. METHOTREXATE [Suspect]
     Active Substance: METHOTREXATE
  4. METHOTREXATE [Suspect]
     Active Substance: METHOTREXATE
  5. METHOTREXATE [Suspect]
     Active Substance: METHOTREXATE
  6. METHOTREXATE [Suspect]
     Active Substance: METHOTREXATE
  7. HUMIRA [Suspect]
     Active Substance: ADALIMUMAB
     Indication: Crohn^s disease
     Dosage: 1 CYCLICAL
  8. HUMIRA [Suspect]
     Active Substance: ADALIMUMAB
     Dosage: 1 CYCLICAL
  9. HUMIRA [Suspect]
     Active Substance: ADALIMUMAB
     Dosage: 1 CYCLICAL
  10. HUMIRA [Suspect]
     Active Substance: ADALIMUMAB
     Dosage: 1 CYCLICAL
  11. HUMIRA [Suspect]
     Active Substance: ADALIMUMAB
     Dosage: 1 CYCLICAL
  12. HUMIRA [Suspect]
     Active Substance: ADALIMUMAB
  13. HUMIRA [Suspect]
     Active Substance: ADALIMUMAB
     Dosage: 1 CYCLICAL
  14. HUMIRA [Suspect]
     Active Substance: ADALIMUMAB
     Dosage: 1 CYCLICAL
  15. HUMIRA [Suspect]
     Active Substance: ADALIMUMAB
     Dosage: 1 CYCLICAL
  16. HUMIRA [Suspect]
     Active Substance: ADALIMUMAB
  17. HUMIRA [Suspect]
     Active Substance: ADALIMUMAB
  18. HUMIRA [Suspect]
     Active Substance: ADALIMUMAB
  19. HUMIRA [Suspect]
     Active Substance: ADALIMUMAB
  20. HUMIRA [Suspect]
     Active Substance: ADALIMUMAB
  21. HUMIRA [Suspect]
     Active Substance: ADALIMUMAB
  22. ERGOCALCIFEROL [Concomitant]
     Active Substance: ERGOCALCIFEROL
     Indication: Nutritional supplementation
  23. FOLIC ACID [Concomitant]
     Active Substance: FOLIC ACID
     Indication: Nutritional supplementation
  24. FOLIC ACID [Concomitant]
     Active Substance: FOLIC ACID
  25. POLYETHYLENE GLYCOL 3350 [Concomitant]
     Active Substance: POLYETHYLENE GLYCOL 3350
     Indication: Constipation
  26. CIPROFLOXACIN [Concomitant]
     Active Substance: CIPROFLOXACIN
     Indication: Anal abscess
  27. KEFLEX [Concomitant]
     Active Substance: CEPHALEXIN
     Indication: Anal abscess
  28. KEFLEX [Concomitant]
     Active Substance: CEPHALEXIN
  29. KEFLEX [Concomitant]
     Active Substance: CEPHALEXIN
  30. KEFLEX [Concomitant]
     Active Substance: CEPHALEXIN
  31. POLYETHYLENE GLYCOLS [Concomitant]
     Active Substance: POLYETHYLENE GLYCOLS
     Indication: Constipation
  32. CIPROFLOXACIN LACTATE [Concomitant]
     Active Substance: CIPROFLOXACIN LACTATE
     Indication: Anal abscess

REACTIONS (6)
  - Clostridium difficile infection [Recovered/Resolved]
  - Crohn^s disease [Not Recovered/Not Resolved]
  - Malnutrition [Not Recovered/Not Resolved]
  - Pyrexia [Not Recovered/Not Resolved]
  - Vulval abscess [Not Recovered/Not Resolved]
  - Product use in unapproved indication [Unknown]
